FAERS Safety Report 13032502 (Version 2)
Quarter: 2017Q1

REPORT INFORMATION
  Report Type: Spontaneous
  Country: US (occurrence: US)
  Receive Date: 20161215
  Receipt Date: 20170323
  Transmission Date: 20170428
  Serious: Yes (Other)
  Sender: FDA-Public Use
  Company Number: US-ALLERGAN-1667759US

PATIENT
  Age: 56 Year
  Sex: Female
  Weight: 74.83 kg

DRUGS (1)
  1. VIBERZI [Suspect]
     Active Substance: ELUXADOLINE
     Indication: DIARRHOEA
     Dosage: 75 MG, BID
     Route: 048
     Dates: start: 20160602, end: 20160819

REACTIONS (2)
  - Sphincter of Oddi dysfunction [Recovered/Resolved]
  - Off label use [Unknown]
